FAERS Safety Report 13933952 (Version 2)
Quarter: 2018Q1

REPORT INFORMATION
  Report Type: Spontaneous
  Country: US (occurrence: US)
  Receive Date: 20170904
  Receipt Date: 20180129
  Transmission Date: 20180508
  Serious: Yes (Hospitalization)
  Sender: FDA-Public Use
  Company Number: US-DSJP-DSU-2017-134450

PATIENT

DRUGS (1)
  1. OLMESARTAN MEDOXOMIL. [Suspect]
     Active Substance: OLMESARTAN MEDOXOMIL
     Indication: PRODUCT USED FOR UNKNOWN INDICATION
     Dosage: UNK
     Dates: start: 20111001, end: 20150601

REACTIONS (4)
  - Weight decreased [Unknown]
  - Colitis microscopic [Recovered/Resolved]
  - Diverticulum [Unknown]
  - Gastric polyps [Unknown]

NARRATIVE: CASE EVENT DATE: 20150101
